FAERS Safety Report 23484170 (Version 1)
Quarter: 2024Q1

REPORT INFORMATION
  Report Type: Report from Study
  Country: US (occurrence: US)
  Receive Date: 20240206
  Receipt Date: 20240206
  Transmission Date: 20240409
  Serious: Yes (Other)
  Sender: FDA-Public Use
  Company Number: US-ABBVIE-5618573

PATIENT
  Sex: Female

DRUGS (4)
  1. VENCLEXTA [Suspect]
     Active Substance: VENETOCLAX
     Indication: B-cell small lymphocytic lymphoma
     Dosage: TWO 100MG TABS?DAILY WEEK 4
     Route: 048
  2. VENCLEXTA [Suspect]
     Active Substance: VENETOCLAX
     Indication: B-cell small lymphocytic lymphoma
     Dosage: ONE 100MG TAB?FORM STRENGTH: 100 MG?FREQUENCY TEXT: DAILY WEEK 3
     Route: 048
  3. VENCLEXTA [Suspect]
     Active Substance: VENETOCLAX
     Indication: B-cell small lymphocytic lymphoma
     Dosage: ONE 50MG TAB?FORM STRENGTH: 50 MG?FREQUENCY TEXT: DAILY WEEK 2
     Route: 048
  4. VENCLEXTA [Suspect]
     Active Substance: VENETOCLAX
     Indication: B-cell small lymphocytic lymphoma
     Dosage: CLL/SLL START PAK; 10 MG?FORM STRENGTH: 10MG ?WITH FOOD DAILY WEEK 1
     Route: 048

REACTIONS (5)
  - Platelet count decreased [Recovering/Resolving]
  - Pain [Recovering/Resolving]
  - Headache [Not Recovered/Not Resolved]
  - White blood cell count decreased [Recovering/Resolving]
  - Red blood cell count decreased [Recovering/Resolving]
